FAERS Safety Report 4738086-7 (Version None)
Quarter: 2005Q3

REPORT INFORMATION
  Report Type: 
  Country: None (occurrence: None)
  Receive Date: 20050805
  Receipt Date: 20050805
  Transmission Date: 20060218
  Serious: No
  Sender: FDA-Public Use
  Company Number: None

PATIENT
  Sex: Male

DRUGS (1)
  1. MEMANTINE HCL [Suspect]
     Indication: DEMENTIA ALZHEIMER'S TYPE
     Dosage: DOSE TITRATE PACK ORAL
     Route: 048
     Dates: start: 20050126, end: 20050610

REACTIONS (2)
  - BLISTER [None]
  - RASH [None]
